FAERS Safety Report 16004943 (Version 2)
Quarter: 2019Q1

REPORT INFORMATION
  Report Type: Spontaneous
  Country: US (occurrence: US)
  Receive Date: 20190226
  Receipt Date: 20190306
  Transmission Date: 20190418
  Serious: Yes (Other)
  Sender: FDA-Public Use
  Company Number: PHEH2019US008083

PATIENT
  Sex: Male

DRUGS (1)
  1. TASIGNA [Suspect]
     Active Substance: NILOTINIB
     Indication: CHRONIC MYELOID LEUKAEMIA
     Dosage: 02 DF, BID
     Route: 048
     Dates: start: 20141030

REACTIONS (21)
  - Tricuspid valve incompetence [Unknown]
  - Chronic kidney disease [Unknown]
  - Aortic arteriosclerosis [Unknown]
  - Pleural effusion [Unknown]
  - Hypercholesterolaemia [Unknown]
  - Obstructive pancreatitis [Unknown]
  - Diabetes mellitus [Unknown]
  - Onychomycosis [Unknown]
  - Aortic valve thickening [Unknown]
  - Portal vein thrombosis [Unknown]
  - Hypertension [Unknown]
  - Mitral valve incompetence [Unknown]
  - Gastrointestinal haemorrhage [Unknown]
  - Sinus headache [Unknown]
  - Cerebrovascular accident [Unknown]
  - Acute sinusitis [Unknown]
  - Pneumonia [Unknown]
  - Iron deficiency anaemia [Unknown]
  - Diarrhoea [Unknown]
  - Pulmonary valve incompetence [Unknown]
  - Urinary tract infection [Unknown]
